FAERS Safety Report 8807983 (Version 3)
Quarter: 2012Q4

REPORT INFORMATION
  Report Type: Report from Study
  Country: US (occurrence: US)
  Receive Date: 20120925
  Receipt Date: 20121121
  Transmission Date: 20130627
  Serious: Yes (Hospitalization)
  Sender: FDA-Public Use
  Company Number: US-JNJFOC-20120908756

PATIENT
  Age: 17 Year
  Sex: Female
  Weight: 54.3 kg

DRUGS (7)
  1. REMICADE [Suspect]
     Indication: COLITIS ULCERATIVE
     Route: 042
     Dates: start: 20110603
  2. HYDROCODONE - ACETAMINOPHEN [Concomitant]
     Dosage: Norco
  3. NEXIUM [Concomitant]
  4. VANCOCIN [Concomitant]
  5. ZOFRAN [Concomitant]
  6. COLACE [Concomitant]
  7. PREDNISONE [Concomitant]

REACTIONS (1)
  - Colitis ulcerative [Recovered/Resolved]
